FAERS Safety Report 14753527 (Version 1)
Quarter: 2018Q2

REPORT INFORMATION
  Report Type: Spontaneous
  Country: NL (occurrence: NL)
  Receive Date: 20180412
  Receipt Date: 20180412
  Transmission Date: 20180711
  Serious: Yes (Hospitalization)
  Sender: FDA-Public Use
  Company Number: NL-TEVA-2018-NL-881833

PATIENT
  Age: 43 Year
  Sex: Female
  Weight: 68 kg

DRUGS (4)
  1. FLUCONAZOL CAPSULE, 150 MG (MILLIGRAM) [Suspect]
     Active Substance: FLUCONAZOLE
     Indication: VULVOVAGINAL MYCOTIC INFECTION
     Dosage: AUGUSTUS - NOVEMBER 2017 1X PER MAAND 1 CAPSULE
  2. VITAMINE C [Concomitant]
     Active Substance: ASCORBIC ACID
     Route: 065
  3. MAGNESIUMCITRAAT [Concomitant]
     Route: 065
  4. VITAMINE D [Concomitant]
     Route: 065

REACTIONS (1)
  - Liver function test abnormal [Recovering/Resolving]
